FAERS Safety Report 6494824-7 (Version None)
Quarter: 2009Q4

REPORT INFORMATION
  Report Type: 
  Country: None (occurrence: None)
  Receive Date: 20091214
  Receipt Date: 20090327
  Transmission Date: 20100525
  Serious: No
  Sender: FDA-Public Use
  Company Number: US-BRISTOL-MYERS SQUIBB COMPANY-14566558

PATIENT
  Age: 6 Year
  Sex: Male
  Weight: 25 kg

DRUGS (4)
  1. ABILIFY [Suspect]
     Indication: BIPOLAR DISORDER
     Route: 048
     Dates: start: 20090101
  2. VYVANSE [Suspect]
     Indication: ATTENTION DEFICIT/HYPERACTIVITY DISORDER
     Dosage: ST'ED WITH 20MG CAPS IN AUG08 AND TITRATED TO 30MG/D IN NOV08 AND INCREASED TO 30MG BID FROM JAN09.
     Route: 048
     Dates: start: 20080801
  3. ZYPREXA [Suspect]
     Route: 048
     Dates: start: 20090101
  4. LITHIUM [Concomitant]

REACTIONS (4)
  - AGGRESSION [None]
  - ANGER [None]
  - BIPOLAR DISORDER [None]
  - IMPULSIVE BEHAVIOUR [None]
